FAERS Safety Report 4393320-0 (Version None)
Quarter: 2004Q3

REPORT INFORMATION
  Report Type: 
  Country: None (occurrence: None)
  Receive Date: 20040701
  Receipt Date: 20040622
  Transmission Date: 20050211
  Serious: Yes (Death, Other)
  Sender: FDA-Public Use
  Company Number: 2004220664DE

PATIENT
  Age: 53 Year
  Sex: Female

DRUGS (5)
  1. GABRIOX (LINEZOLID) SOLUTION, STERILE [Suspect]
     Indication: SEPSIS
     Dosage: 600 MG, BID, IV
     Route: 042
  2. CEFOTAXIME [Concomitant]
  3. VANCOMYCIN [Concomitant]
  4. RIFAMIPICIN [Concomitant]
  5. MEROPENEM [Concomitant]

REACTIONS (11)
  - ABDOMINAL MASS [None]
  - DRUG INEFFECTIVE [None]
  - ENTEROCOCCAL INFECTION [None]
  - GENERAL PHYSICAL HEALTH DETERIORATION [None]
  - LARGE INTESTINE PERFORATION [None]
  - MULTI-ORGAN FAILURE [None]
  - PANCREATIC NECROSIS [None]
  - PANCREATITIS NECROTISING [None]
  - PATHOGEN RESISTANCE [None]
  - PERITONITIS [None]
  - SEPTIC SHOCK [None]
